FAERS Safety Report 19501416 (Version 1)
Quarter: 2021Q3

REPORT INFORMATION
  Report Type: Spontaneous
  Country: DK (occurrence: DK)
  Receive Date: 20210707
  Receipt Date: 20210707
  Transmission Date: 20211014
  Serious: Yes (Disabling)
  Sender: FDA-Public Use
  Company Number: DK-TEVA-2021-DK-1929543

PATIENT
  Age: 43 Year
  Sex: Female

DRUGS (1)
  1. AJOVY [Suspect]
     Active Substance: FREMANEZUMAB-VFRM
     Indication: MIGRAINE
     Dosage: UNIT DOSE:225 MG
     Dates: start: 20200612, end: 20210312

REACTIONS (1)
  - Back pain [Unknown]

NARRATIVE: CASE EVENT DATE: 202008
